FAERS Safety Report 5147365-3 (Version None)
Quarter: 2006Q4

REPORT INFORMATION
  Report Type: 
  Country: None (occurrence: None)
  Receive Date: 20061102
  Receipt Date: 20061024
  Transmission Date: 20070319
  Serious: Yes (Death, Hospitalization)
  Sender: FDA-Public Use
  Company Number: HQWYE485431JUL03

PATIENT
  Age: 18 Year
  Sex: Male
  Weight: 82 kg

DRUGS (2)
  1. MYLOTARG [Suspect]
     Indication: ACUTE MYELOID LEUKAEMIA
     Dosage: 15 MG 1X PER 1 DAY, INTRAVENOUS
     Route: 042
     Dates: start: 20030714, end: 20061102
  2. PENTAMIDINE ISETHIONATE [Concomitant]

REACTIONS (16)
  - CANDIDIASIS [None]
  - CYTOMEGALOVIRUS INFECTION [None]
  - DISEASE PROGRESSION [None]
  - FACE INJURY [None]
  - FALL [None]
  - FEBRILE NEUTROPENIA [None]
  - GRAFT VERSUS HOST DISEASE [None]
  - MENTAL STATUS CHANGES [None]
  - PANCYTOPENIA [None]
  - PLEURAL EFFUSION [None]
  - PULMONARY OEDEMA [None]
  - RENAL FAILURE [None]
  - THROMBOTIC THROMBOCYTOPENIC PURPURA [None]
  - UNRESPONSIVE TO STIMULI [None]
  - VENOOCCLUSIVE LIVER DISEASE [None]
  - WEIGHT INCREASED [None]
